FAERS Safety Report 6764933-3 (Version None)
Quarter: 2010Q2

REPORT INFORMATION
  Report Type: 
  Country: None (occurrence: None)
  Receive Date: 20100610
  Receipt Date: 20100601
  Transmission Date: 20101027
  Serious: Yes (Hospitalization)
  Sender: FDA-Public Use
  Company Number: US-AMGEN-QUU415704

PATIENT
  Sex: Female

DRUGS (1)
  1. ENBREL [Suspect]
     Indication: JUVENILE ARTHRITIS
     Route: 058
     Dates: start: 20030912, end: 20090101

REACTIONS (4)
  - INJECTION SITE PAIN [None]
  - IRON DEFICIENCY ANAEMIA [None]
  - LABOUR ONSET DELAYED [None]
  - POSTPARTUM HAEMORRHAGE [None]
